FAERS Safety Report 25358843 (Version 1)
Quarter: 2025Q2

REPORT INFORMATION
  Report Type: Report from Study
  Country: US (occurrence: US)
  Receive Date: 20250526
  Receipt Date: 20250526
  Transmission Date: 20250716
  Serious: Yes (Other)
  Sender: MALLINCKRODT
  Company Number: US-MALLINCKRODT-MNK202502982

PATIENT
  Sex: Female
  Weight: 159 kg

DRUGS (1)
  1. CORTICOTROPIN [Suspect]
     Active Substance: CORTICOTROPIN
     Indication: Systemic lupus erythematosus

REACTIONS (3)
  - Sjogren^s syndrome [Unknown]
  - Inflammatory marker increased [Unknown]
  - Ill-defined disorder [Unknown]
